FAERS Safety Report 6312041-8 (Version None)
Quarter: 2009Q3

REPORT INFORMATION
  Report Type: 
  Country: None (occurrence: None)
  Receive Date: 20090817
  Receipt Date: 20090813
  Transmission Date: 20100115
  Serious: Yes (Life-Threatening)
  Sender: FDA-Public Use
  Company Number: FR-ASTRAZENECA-2009SE08016

PATIENT
  Age: 17610 Day
  Sex: Female

DRUGS (3)
  1. DIPRIVAN [Suspect]
     Indication: INDUCTION OF ANAESTHESIA
     Route: 042
     Dates: start: 20090210, end: 20090210
  2. HYPNOVEL [Suspect]
     Indication: PREMEDICATION
     Route: 042
     Dates: start: 20090210, end: 20090210
  3. AUGMENTIN [Suspect]
     Route: 042
     Dates: start: 20090210, end: 20090210

REACTIONS (1)
  - SHOCK [None]
